FAERS Safety Report 14632649 (Version 2)
Quarter: 2018Q2

REPORT INFORMATION
  Report Type: Spontaneous
  Country: US (occurrence: US)
  Receive Date: 20180313
  Receipt Date: 20180406
  Transmission Date: 20180711
  Serious: No
  Sender: FDA-Public Use
  Company Number: US-TAIHO ONCOLOGY INC-EU-2018-00357

PATIENT
  Sex: Male
  Weight: 74.46 kg

DRUGS (12)
  1. LONSURF [Suspect]
     Active Substance: TIPIRACIL HYDROCHLORIDE\TRIFLURIDINE
     Indication: COLON CANCER
     Dosage: CYCLE 12
     Route: 048
     Dates: start: 20170329, end: 20180226
  2. PROCHLORPERAZINE. [Concomitant]
     Active Substance: PROCHLORPERAZINE
     Dosage: NI
  3. CITALOPRAM [Concomitant]
     Active Substance: CITALOPRAM HYDROBROMIDE
     Dosage: NI
  4. LOMOTIL [Concomitant]
     Active Substance: ATROPINE SULFATE\DIPHENOXYLATE HYDROCHLORIDE
     Dosage: NI
  5. SEROQUEL [Concomitant]
     Active Substance: QUETIAPINE FUMARATE
     Dosage: NI
  6. SYMBICORT [Concomitant]
     Active Substance: BUDESONIDE\FORMOTEROL FUMARATE DIHYDRATE
     Dosage: NI
  7. LEVAQUIN [Concomitant]
     Active Substance: LEVOFLOXACIN
     Dosage: NI
  8. XELODA [Concomitant]
     Active Substance: CAPECITABINE
     Dosage: NI
  9. FERROUSUL [Concomitant]
     Dosage: NI
  10. ONDANSETRON [Concomitant]
     Active Substance: ONDANSETRON
     Dosage: NI
  11. NEURONTIN [Concomitant]
     Active Substance: GABAPENTIN
     Dosage: NI
  12. SALBUTAMOL [Concomitant]
     Active Substance: ALBUTEROL
     Dosage: NI

REACTIONS (2)
  - Hydronephrosis [Unknown]
  - Disease progression [Unknown]
